FAERS Safety Report 8410888-5 (Version None)
Quarter: 2012Q2

REPORT INFORMATION
  Report Type: 
  Country: None (occurrence: None)
  Receive Date: 20120605
  Receipt Date: 20120604
  Transmission Date: 20120825
  Serious: Yes (Death)
  Sender: FDA-Public Use
  Company Number: PHHY2012HU017823

PATIENT
  Age: 69 Year
  Sex: Male

DRUGS (2)
  1. ZOLEDRONOC ACID [Suspect]
     Dosage: UNK
     Dates: start: 20091120
  2. ZOLEDRONOC ACID [Suspect]
     Dosage: UNK
     Dates: start: 20100219

REACTIONS (1)
  - DEATH [None]
